FAERS Safety Report 7601875-5 (Version None)
Quarter: 2011Q3

REPORT INFORMATION
  Report Type: 
  Country: None (occurrence: None)
  Receive Date: 20110711
  Receipt Date: 20110704
  Transmission Date: 20111222
  Serious: Yes (Hospitalization, Other)
  Sender: FDA-Public Use
  Company Number: CA-ABBOTT-11P-028-0834507-00

PATIENT
  Sex: Female
  Weight: 68.1 kg

DRUGS (3)
  1. HUMIRA [Suspect]
     Dates: start: 20110401
  2. SUPEUDOL [Concomitant]
     Indication: PAIN
     Route: 048
     Dates: start: 20090101
  3. HUMIRA [Suspect]
     Indication: CROHN'S DISEASE
     Route: 058
     Dates: start: 20090622, end: 20110408

REACTIONS (6)
  - POSTOPERATIVE WOUND INFECTION [None]
  - ABDOMINAL PAIN [None]
  - PYREXIA [None]
  - IMPAIRED HEALING [None]
  - INTESTINAL OBSTRUCTION [None]
  - ABDOMINAL INFECTION [None]
